FAERS Safety Report 5737109-6 (Version None)
Quarter: 2008Q2

REPORT INFORMATION
  Report Type: 
  Country: None (occurrence: None)
  Receive Date: 20080514
  Receipt Date: 20080508
  Transmission Date: 20081010
  Serious: Yes (Other)
  Sender: FDA-Public Use
  Company Number: JP-WYE-H02024508

PATIENT
  Sex: Female
  Weight: 41 kg

DRUGS (1)
  1. MYLOTARG [Suspect]
     Indication: ACUTE MYELOID LEUKAEMIA RECURRENT
     Route: 041
     Dates: start: 20070110, end: 20070110

REACTIONS (2)
  - BLOOD PRESSURE DECREASED [None]
  - CHOLECYSTITIS [None]
